FAERS Safety Report 20522527 (Version 1)
Quarter: 2022Q1

REPORT INFORMATION
  Report Type: Spontaneous
  Country: US (occurrence: US)
  Receive Date: 20220226
  Receipt Date: 20220226
  Transmission Date: 20220423
  Serious: Yes (Other)
  Sender: FDA-Public Use
  Company Number: US-NOVARTISPH-NVSC2022US044611

PATIENT
  Age: 61 Year
  Sex: Female

DRUGS (2)
  1. RANITIDINE [Suspect]
     Active Substance: RANITIDINE
     Indication: Product used for unknown indication
     Dosage: ,,150 MG,300 MG,,,,DAILY,
     Route: 048
     Dates: start: 198701, end: 200712
  2. RANITIDINE [Suspect]
     Active Substance: RANITIDINE
     Indication: Product used for unknown indication
     Dosage: ,,150 MG,300 MG,,,,DAILY,
     Route: 048
     Dates: start: 198701, end: 200712

REACTIONS (1)
  - Colorectal cancer [Recovering/Resolving]

NARRATIVE: CASE EVENT DATE: 20121101
